FAERS Safety Report 8778636 (Version 1)
Quarter: 2012Q4

REPORT INFORMATION
  Report Type: 
  Country: US (occurrence: US)
  Receive Date: 20120912
  Receipt Date: 20120912
  Transmission Date: 20130627
  Serious: Yes (Death)
  Sender: FDA-Public Use
  Company Number: US-BRISTOL-MYERS SQUIBB COMPANY-16932295

PATIENT
  Sex: Male

DRUGS (2)
  1. COUMADIN [Suspect]
     Dosage: 15-18 years
  2. WARFARIN SODIUM [Suspect]

REACTIONS (2)
  - Death [Fatal]
  - Contusion [Unknown]
